FAERS Safety Report 6504449-2 (Version None)
Quarter: 2009Q4

REPORT INFORMATION
  Report Type: 
  Country: None (occurrence: None)
  Receive Date: 20091217
  Receipt Date: 20091207
  Transmission Date: 20100525
  Serious: Yes (Hospitalization, Other)
  Sender: FDA-Public Use
  Company Number: RU-GENENTECH-295686

PATIENT
  Age: 58 Year
  Sex: Female

DRUGS (3)
  1. RITUXIMAB [Suspect]
     Indication: CHRONIC LYMPHOCYTIC LEUKAEMIA
     Dosage: FREQUENCY: ONCE, FORM: INFUSION
     Route: 042
     Dates: start: 20090924, end: 20090924
  2. METHOTREXATE [Concomitant]
     Indication: RHEUMATOID ARTHRITIS
     Dosage: 10 MG, UNK
     Dates: start: 19990101
  3. PREDNISOLONE [Concomitant]
     Indication: RHEUMATOID ARTHRITIS
     Dosage: FREQUENCY: DAILY
     Dates: start: 20030101

REACTIONS (10)
  - ARTHRITIS [None]
  - ARTHRITIS INFECTIVE [None]
  - FALL [None]
  - FEMORAL NECK FRACTURE [None]
  - GASTROINTESTINAL NECROSIS [None]
  - LIMB INJURY [None]
  - MESENTERIC VASCULAR INSUFFICIENCY [None]
  - POSTOPERATIVE ABSCESS [None]
  - RENAL FAILURE ACUTE [None]
  - ULCER [None]
